FAERS Safety Report 22141952 (Version 2)
Quarter: 2023Q2

REPORT INFORMATION
  Report Type: Spontaneous
  Country: US (occurrence: US)
  Receive Date: 20230327
  Receipt Date: 20230410
  Transmission Date: 20230721
  Serious: No
  Sender: FDA-Public Use
  Company Number: US-BAXTER-2023BAX016464

PATIENT
  Age: 79 Year
  Sex: Male

DRUGS (2)
  1. DIANEAL FOR PERITONEAL DIALYSIS [Suspect]
     Active Substance: ANHYDROUS DEXTROSE\CALCIUM CHLORIDE\MAGNESIUM CHLORIDE\SODIUM CHLORIDE\SODIUM LACTATE
     Indication: Peritoneal dialysis
     Dosage: 2 BAGS
     Route: 033
     Dates: start: 20230112
  2. DIANEAL FOR PERITONEAL DIALYSIS [Suspect]
     Active Substance: ANHYDROUS DEXTROSE\CALCIUM CHLORIDE\MAGNESIUM CHLORIDE\SODIUM CHLORIDE\SODIUM LACTATE
     Dosage: 1 BAG
     Route: 033
     Dates: start: 20230401

REACTIONS (6)
  - Skin discolouration [Not Recovered/Not Resolved]
  - Hypersomnia [Not Recovered/Not Resolved]
  - Arthralgia [Recovering/Resolving]
  - Blood glucose decreased [Unknown]
  - Back pain [Recovering/Resolving]
  - Muscle spasms [Recovered/Resolved]

NARRATIVE: CASE EVENT DATE: 20230401
